FAERS Safety Report 9065663 (Version 1)
Quarter: 2013Q1

REPORT INFORMATION
  Report Type: Spontaneous
  Country: GB (occurrence: GB)
  Receive Date: 20130214
  Receipt Date: 20130214
  Transmission Date: 20140127
  Serious: Yes (Hospitalization)
  Sender: FDA-Public Use
  Company Number: GB-JNJFOC-20130200428

PATIENT
  Age: 26 Year
  Sex: Female

DRUGS (3)
  1. ORAMORPH [Suspect]
     Indication: ABDOMINAL PAIN
     Route: 065
  2. DUROGESIC D-TRANS [Suspect]
     Indication: ABDOMINAL PAIN
     Route: 062
  3. TRAMADOL [Suspect]
     Indication: ABDOMINAL PAIN
     Route: 065

REACTIONS (1)
  - Narcotic bowel syndrome [Recovered/Resolved]
